FAERS Safety Report 4573612-2 (Version None)
Quarter: 2005Q1

REPORT INFORMATION
  Report Type: 
  Country: None (occurrence: None)
  Receive Date: 20050203
  Receipt Date: 20050121
  Transmission Date: 20050727
  Serious: Yes (Hospitalization)
  Sender: FDA-Public Use
  Company Number: 2005PL000003

PATIENT
  Age: 70 Year
  Sex: Female

DRUGS (4)
  1. AZATHIOPRINE [Suspect]
     Indication: SYSTEMIC LUPUS ERYTHEMATOSUS
     Dosage: 50 MG; DAILY; ORAL
     Route: 048
     Dates: end: 20041109
  2. CLOBAZAM (CLOBAZAM) [Suspect]
     Indication: EPILEPSY
     Dosage: ORAL
     Route: 048
  3. TOPIRAMATE [Suspect]
     Indication: EPILEPSY
     Dosage: DAILY; ORAL
     Route: 048
  4. LEVETIRACETAM [Suspect]
     Indication: EPILEPSY
     Dosage: DAILY; ORAL
     Route: 048
     Dates: start: 20041026

REACTIONS (2)
  - HEPATITIS CHOLESTATIC [None]
  - PANCREATIC ATROPHY [None]
